FAERS Safety Report 7068105-7 (Version None)
Quarter: 2010Q4

REPORT INFORMATION
  Report Type: 
  Country: None (occurrence: None)
  Receive Date: 20101027
  Receipt Date: 20101027
  Transmission Date: 20110411
  Serious: Yes (Hospitalization)
  Sender: FDA-Public Use
  Company Number: None

PATIENT
  Age: 66 Year
  Sex: Female
  Weight: 68.0396 kg

DRUGS (1)
  1. BONIVA [Suspect]
     Indication: BONE DENSITY DECREASED
     Dates: start: 20051201, end: 20100601

REACTIONS (2)
  - FALL [None]
  - FEMUR FRACTURE [None]
